FAERS Safety Report 22188321 (Version 1)
Quarter: 2023Q2

REPORT INFORMATION
  Report Type: Spontaneous
  Country: US (occurrence: US)
  Receive Date: 20230408
  Receipt Date: 20230408
  Transmission Date: 20230722
  Serious: Yes (Death, Other)
  Sender: FDA-Public Use
  Company Number: US-drreddys-SPO/USA/23/0163274

PATIENT
  Age: 10 Year
  Sex: Male
  Weight: 33 kg

DRUGS (29)
  1. TOPOTECAN HYDROCHLORIDE [Suspect]
     Active Substance: TOPOTECAN HYDROCHLORIDE
     Indication: Neuroblastoma
     Dates: start: 2004, end: 2004
  2. TOPOTECAN HYDROCHLORIDE [Suspect]
     Active Substance: TOPOTECAN HYDROCHLORIDE
     Indication: Metastases to bone
  3. ISOTRETINOIN [Suspect]
     Active Substance: ISOTRETINOIN
     Indication: Metastases to bone
     Dates: start: 2004, end: 2005
  4. ISOTRETINOIN [Suspect]
     Active Substance: ISOTRETINOIN
     Indication: Neuroblastoma
  5. CYCLOPHOSPHAMIDE [Suspect]
     Active Substance: CYCLOPHOSPHAMIDE
     Indication: Metastases to bone
     Dosage: DAYS 22-41
     Route: 048
  6. CYCLOPHOSPHAMIDE [Suspect]
     Active Substance: CYCLOPHOSPHAMIDE
     Indication: Neuroblastoma
     Dosage: 50 MG/M2 EVERY 42 DAYS (DAYS 22-42)
     Dates: start: 20051010, end: 20061106
  7. CYCLOPHOSPHAMIDE [Suspect]
     Active Substance: CYCLOPHOSPHAMIDE
     Indication: Chemotherapy
  8. CYTOXAN [Suspect]
     Active Substance: CYCLOPHOSPHAMIDE
     Indication: Neuroblastoma recurrent
     Dosage: DAYS 22-41
     Route: 048
     Dates: start: 2005
  9. CYTOXAN [Suspect]
     Active Substance: CYCLOPHOSPHAMIDE
     Indication: Metastases to bone
     Dates: start: 20060123
  10. CYTOXAN [Suspect]
     Active Substance: CYCLOPHOSPHAMIDE
     Dates: start: 20060216
  11. CYTOXAN [Suspect]
     Active Substance: CYCLOPHOSPHAMIDE
     Dates: start: 20060511
  12. CARBOPLATIN [Suspect]
     Active Substance: CARBOPLATIN
     Indication: Metastases to bone
  13. CARBOPLATIN [Suspect]
     Active Substance: CARBOPLATIN
     Indication: Neuroblastoma
  14. ADRIAMYCIN [Suspect]
     Active Substance: DOXORUBICIN HYDROCHLORIDE
     Indication: Neuroblastoma
     Dosage: \
  15. ADRIAMYCIN [Suspect]
     Active Substance: DOXORUBICIN HYDROCHLORIDE
     Indication: Metastases to bone
  16. IFOSFAMIDE [Suspect]
     Active Substance: IFOSFAMIDE
     Indication: Neuroblastoma
  17. IFOSFAMIDE [Suspect]
     Active Substance: IFOSFAMIDE
     Indication: Metastases to bone
  18. ETOPOSIDE [Suspect]
     Active Substance: ETOPOSIDE
     Indication: Neuroblastoma recurrent
     Dosage: DAYS 1-21
     Route: 048
     Dates: start: 20051010, end: 20061106
  19. ETOPOSIDE [Suspect]
     Active Substance: ETOPOSIDE
     Indication: Metastases to bone
     Dates: start: 20060511
  20. ETOPOSIDE [Suspect]
     Active Substance: ETOPOSIDE
     Indication: Neuroblastoma
  21. VINCRISTINE [Suspect]
     Active Substance: VINCRISTINE
     Indication: Metastases to bone
  22. VINCRISTINE [Suspect]
     Active Substance: VINCRISTINE
     Indication: Neuroblastoma
  23. CISPLATIN [Suspect]
     Active Substance: CISPLATIN
     Indication: Neuroblastoma
     Dosage: HIGH-DOSE
  24. CISPLATIN [Suspect]
     Active Substance: CISPLATIN
     Indication: Metastases to bone
  25. CELEBREX [Suspect]
     Active Substance: CELECOXIB
     Indication: Neovascularisation
     Route: 048
  26. CELEBREX [Suspect]
     Active Substance: CELECOXIB
  27. CELEBREX [Suspect]
     Active Substance: CELECOXIB
     Dosage: DAYS 1-42
     Route: 048
     Dates: start: 20060914, end: 20061106
  28. SULINDAC [Concomitant]
     Active Substance: SULINDAC
     Indication: Metastases to bone
     Dates: start: 2005
  29. SULINDAC [Concomitant]
     Active Substance: SULINDAC
     Indication: Neuroblastoma recurrent

REACTIONS (10)
  - Upper gastrointestinal haemorrhage [Fatal]
  - Gastritis haemorrhagic [Fatal]
  - Neuroblastoma recurrent [Unknown]
  - Disease progression [Unknown]
  - Haematemesis [Unknown]
  - Pneumonia aspiration [Unknown]
  - Acute kidney injury [Unknown]
  - Seizure [Unknown]
  - Haematotoxicity [Recovered/Resolved]
  - Product use in unapproved indication [Unknown]
